FAERS Safety Report 4300043-2 (Version None)
Quarter: 2004Q1

REPORT INFORMATION
  Report Type: 
  Country: None (occurrence: None)
  Receive Date: 20040219
  Receipt Date: 20040219
  Transmission Date: 20041129
  Serious: Yes (Hospitalization)
  Sender: FDA-Public Use
  Company Number: None

PATIENT
  Age: 61 Year
  Sex: Male

DRUGS (6)
  1. CELECOXIB 200 MG [Suspect]
     Indication: OSTEOARTHRITIS
     Dosage: 1 PO BID
     Route: 048
  2. CEPHALEXIN [Suspect]
     Indication: CELLULITIS
     Dosage: 1 PO BID
     Route: 048
  3. ATENOLOL [Concomitant]
  4. FOSINOPRIL SODIUM [Concomitant]
  5. HYDROCHLOROTHIAZIDE [Concomitant]
  6. TRAZODONE HCL [Concomitant]

REACTIONS (8)
  - ABDOMINAL PAIN [None]
  - CELLULITIS [None]
  - DEHYDRATION [None]
  - DIARRHOEA [None]
  - GASTRITIS [None]
  - HAEMATEMESIS [None]
  - MELAENA [None]
  - RENAL FAILURE ACUTE [None]
